FAERS Safety Report 15879100 (Version 2)
Quarter: 2019Q1

REPORT INFORMATION
  Report Type: Spontaneous
  Country: US (occurrence: US)
  Receive Date: 20190128
  Receipt Date: 20190307
  Transmission Date: 20190417
  Serious: No
  Sender: FDA-Public Use
  Company Number: US-BIOGEN-2018BI00660084

PATIENT
  Age: 53 Year
  Sex: Male

DRUGS (16)
  1. AMPYRA [Concomitant]
     Active Substance: DALFAMPRIDINE
     Indication: GAIT DISTURBANCE
     Route: 050
     Dates: start: 20141104
  2. METHIMAZOLE. [Concomitant]
     Active Substance: METHIMAZOLE
     Indication: PRODUCT USED FOR UNKNOWN INDICATION
     Route: 065
  3. VITAMIN B12 [Concomitant]
     Active Substance: CYANOCOBALAMIN
     Indication: PRODUCT USED FOR UNKNOWN INDICATION
     Route: 050
  4. ANASTROZOLE. [Concomitant]
     Active Substance: ANASTROZOLE
     Indication: PRODUCT USED FOR UNKNOWN INDICATION
     Route: 050
  5. PREDNISONE. [Concomitant]
     Active Substance: PREDNISONE
     Indication: PRODUCT USED FOR UNKNOWN INDICATION
     Route: 050
  6. ADVIL [Concomitant]
     Active Substance: IBUPROFEN
     Indication: PRODUCT USED FOR UNKNOWN INDICATION
     Route: 050
  7. ATENOLOL. [Concomitant]
     Active Substance: ATENOLOL
     Indication: PRODUCT USED FOR UNKNOWN INDICATION
     Route: 065
  8. TECFIDERA [Suspect]
     Active Substance: DIMETHYL FUMARATE
     Indication: MULTIPLE SCLEROSIS
     Dosage: MAINTENANCE DOSE
     Route: 050
     Dates: start: 20150120
  9. AMOXICILLIN. [Concomitant]
     Active Substance: AMOXICILLIN
     Indication: PRODUCT USED FOR UNKNOWN INDICATION
     Route: 050
  10. TECFIDERA [Suspect]
     Active Substance: DIMETHYL FUMARATE
     Dosage: MAINTENANCE DOSE
     Route: 050
     Dates: start: 20150612
  11. TESTOST CYP [Concomitant]
     Active Substance: TESTOSTERONE CYPIONATE
     Indication: PRODUCT USED FOR UNKNOWN INDICATION
     Route: 050
  12. TECFIDERA [Suspect]
     Active Substance: DIMETHYL FUMARATE
     Dosage: 240 MILLIGRAM, BID
     Route: 048
  13. AMPYRA [Concomitant]
     Active Substance: DALFAMPRIDINE
     Dosage: 10 MG, BID OR Q 12 HRS
     Route: 050
  14. AMANTIDINE [Concomitant]
     Active Substance: AMANTADINE
     Indication: PRODUCT USED FOR UNKNOWN INDICATION
     Route: 050
  15. TIZANIDINE. [Concomitant]
     Active Substance: TIZANIDINE
     Indication: PRODUCT USED FOR UNKNOWN INDICATION
     Route: 050
  16. C 1000 [Concomitant]
     Indication: PRODUCT USED FOR UNKNOWN INDICATION
     Route: 050

REACTIONS (6)
  - Influenza [Not Recovered/Not Resolved]
  - Multiple sclerosis relapse [Not Recovered/Not Resolved]
  - Fatigue [Unknown]
  - Extra dose administered [Unknown]
  - Hyperthyroidism [Unknown]
  - Insomnia [Unknown]

NARRATIVE: CASE EVENT DATE: 201810
